FAERS Safety Report 5503790-X (Version None)
Quarter: 2007Q4

REPORT INFORMATION
  Report Type: 
  Country: None (occurrence: None)
  Receive Date: 20071030
  Receipt Date: 20070712
  Transmission Date: 20080405
  Serious: No
  Sender: FDA-Public Use
  Company Number: 265439

PATIENT
  Age: 66 Year
  Sex: Male
  Weight: 95.2 kg

DRUGS (7)
  1. LEVEMIR [Suspect]
     Indication: TYPE 1 DIABETES MELLITUS
     Dosage: SUBCUTANEOUS
     Route: 058
     Dates: start: 20070620
  2. GLUCOFORMIN (METFORMIN HYDROCHLORIDE) [Concomitant]
  3. GLIPIZIDE [Concomitant]
  4. COREG [Concomitant]
  5. ALTACE [Concomitant]
  6. ASPIRIN [Concomitant]
  7. INDOCID /00003801/ (INDOMETACIN) [Concomitant]

REACTIONS (1)
  - GOUT [None]
